FAERS Safety Report 12189595 (Version 1)
Quarter: 2016Q1

REPORT INFORMATION
  Report Type: Spontaneous
  Country: CA (occurrence: CA)
  Receive Date: 20160318
  Receipt Date: 20160318
  Transmission Date: 20160526
  Serious: Yes (Other)
  Sender: FDA-Public Use
  Company Number: CA-009507513-1603CAN007187

PATIENT
  Age: 28 Year
  Sex: Male

DRUGS (4)
  1. DEXAMETHASONE. [Concomitant]
     Active Substance: DEXAMETHASONE
     Dosage: 4 MG, BID (4MG TABLET TWO TIMES EVERY 1 DAY)
     Route: 065
  2. DEXAMETHASONE. [Concomitant]
     Active Substance: DEXAMETHASONE
     Indication: PRODUCT USED FOR UNKNOWN INDICATION
     Dosage: 4 MG (ONE TABLET EVERY DAY)
     Route: 065
  3. TEMODAL [Suspect]
     Active Substance: TEMOZOLOMIDE
     Indication: BRAIN CANCER METASTATIC
     Route: 048
  4. AVASTIN [Suspect]
     Active Substance: BEVACIZUMAB
     Indication: BRAIN CANCER METASTATIC
     Dosage: DOSE 900 MG, (FORMUALTION: INTRAVENOUS SOLUTION)
     Route: 042

REACTIONS (2)
  - Headache [Not Recovered/Not Resolved]
  - Brain oedema [Not Recovered/Not Resolved]
